FAERS Safety Report 19476590 (Version 2)
Quarter: 2021Q3

REPORT INFORMATION
  Report Type: Spontaneous
  Country: BR (occurrence: BR)
  Receive Date: 20210630
  Receipt Date: 20210715
  Transmission Date: 20211014
  Serious: Yes (Other)
  Sender: FDA-Public Use
  Company Number: BR-BAYER-2021-164495

PATIENT
  Age: 79 Year
  Sex: Female

DRUGS (4)
  1. ABLOK [Concomitant]
     Active Substance: ATENOLOL
  2. CLORANA [Concomitant]
     Active Substance: HYDROCHLOROTHIAZIDE
  3. GLIFAGE XR [Concomitant]
     Active Substance: METFORMIN HYDROCHLORIDE
  4. CIPRO [Suspect]
     Active Substance: CIPROFLOXACIN HYDROCHLORIDE
     Indication: URINARY TRACT INFECTION
     Dosage: 500 MG, BID
     Route: 048
     Dates: start: 20210621, end: 20210622

REACTIONS (3)
  - Nausea [Recovering/Resolving]
  - Dry throat [Recovering/Resolving]
  - Pruritus [Recovering/Resolving]

NARRATIVE: CASE EVENT DATE: 20210622
